FAERS Safety Report 24724132 (Version 4)
Quarter: 2025Q3

REPORT INFORMATION
  Report Type: Spontaneous
  Country: US (occurrence: US)
  Receive Date: 20241211
  Receipt Date: 20250804
  Transmission Date: 20251021
  Serious: Yes (Other)
  Sender: BRISTOL-MYERS SQUIBB COMPANY
  Company Number: US-BRISTOL-MYERS SQUIBB COMPANY-2024-192667

PATIENT
  Age: 60 Year
  Sex: Male

DRUGS (3)
  1. REVLIMID [Suspect]
     Active Substance: LENALIDOMIDE
     Indication: Plasma cell myeloma
     Route: 048
  2. REVLIMID [Suspect]
     Active Substance: LENALIDOMIDE
     Route: 048
  3. REVLIMID [Suspect]
     Active Substance: LENALIDOMIDE
     Dosage: 14 DAYS ON 14 DAYS OFF
     Route: 048

REACTIONS (7)
  - Dyspepsia [Unknown]
  - Blood iron decreased [Not Recovered/Not Resolved]
  - Neuralgia [Unknown]
  - Diarrhoea [Unknown]
  - Constipation [Unknown]
  - Alopecia [Unknown]
  - Fatigue [Unknown]
